FAERS Safety Report 16348224 (Version 2)
Quarter: 2019Q3

REPORT INFORMATION
  Report Type: Spontaneous
  Country: JP (occurrence: JP)
  Receive Date: 20190523
  Receipt Date: 20190703
  Transmission Date: 20191004
  Serious: Yes (Other)
  Sender: FDA-Public Use
  Company Number: JP-BRISTOL-MYERS SQUIBB COMPANY-BMS-2019-040495

PATIENT
  Age: 80 Year
  Sex: Male

DRUGS (1)
  1. OPDIVO [Suspect]
     Active Substance: NIVOLUMAB
     Indication: GASTRIC CANCER
     Dosage: UNK
     Route: 041

REACTIONS (5)
  - Demyelinating polyneuropathy [Recovering/Resolving]
  - Oedema [Unknown]
  - Rash pruritic [Unknown]
  - Diarrhoea [Recovering/Resolving]
  - Hypothyroidism [Unknown]
